FAERS Safety Report 8450118-1 (Version None)
Quarter: 2012Q2

REPORT INFORMATION
  Report Type: 
  Country: None (occurrence: None)
  Receive Date: 20120620
  Receipt Date: 20120611
  Transmission Date: 20120825
  Serious: Yes (Hospitalization)
  Sender: FDA-Public Use
  Company Number: US-US-EMD SERONO, INC.-7140124

PATIENT
  Sex: Female

DRUGS (2)
  1. REBIF [Suspect]
     Indication: MULTIPLE SCLEROSIS
     Route: 058
     Dates: start: 20090610
  2. ETODOLAC [Suspect]
     Indication: PAIN

REACTIONS (10)
  - ABDOMINAL DISCOMFORT [None]
  - FATIGUE [None]
  - CHEST PAIN [None]
  - TEMPOROMANDIBULAR JOINT SYNDROME [None]
  - ASTHMA [None]
  - BLOOD GLUCOSE INCREASED [None]
  - INSOMNIA [None]
  - COUGH [None]
  - EAR PAIN [None]
  - INFLUENZA LIKE ILLNESS [None]
